FAERS Safety Report 7780393-8 (Version None)
Quarter: 2011Q3

REPORT INFORMATION
  Report Type: 
  Country: None (occurrence: None)
  Receive Date: 20110927
  Receipt Date: 20110916
  Transmission Date: 20111222
  Serious: Yes (Hospitalization)
  Sender: FDA-Public Use
  Company Number: RU-SANOFI-AVENTIS-2011SA048237

PATIENT
  Age: 73 Year
  Sex: Female
  Weight: 85 kg

DRUGS (8)
  1. ISOSORBIDE DINITRATE [Concomitant]
  2. ATORVASTATIN [Concomitant]
  3. WARFARIN SODIUM [Concomitant]
     Dosage: 43.6 MG WEEKLY
  4. AMLODIPINE [Concomitant]
  5. DIURETICS [Concomitant]
  6. DRONEDARONE HCL [Suspect]
     Indication: ATRIAL FIBRILLATION
     Route: 048
     Dates: start: 20110419, end: 20110708
  7. METOPROLOL TARTRATE [Concomitant]
  8. LOSARTAN POTASSIUM [Concomitant]

REACTIONS (1)
  - CARDIAC FAILURE [None]
